FAERS Safety Report 5087971-8 (Version None)
Quarter: 2006Q3

REPORT INFORMATION
  Report Type: 
  Country: None (occurrence: None)
  Receive Date: 20060824
  Receipt Date: 20060822
  Transmission Date: 20061208
  Serious: Yes (Death, Hospitalization)
  Sender: FDA-Public Use
  Company Number: US-JNJFOC-20060605623

PATIENT
  Sex: Male
  Weight: 76.43 kg

DRUGS (5)
  1. TYLENOL (CAPLET) [Suspect]
  2. TYLENOL (CAPLET) [Suspect]
     Indication: HEADACHE
     Dosage: 2600-2925 MG PER DAY FOR 1 WEEK
  3. HUMALOG [Concomitant]
     Indication: DIABETES MELLITUS INSULIN-DEPENDENT
  4. EFFEXOR XR [Concomitant]
     Indication: DEPRESSION
  5. BACTRIM [Concomitant]
     Indication: FOLLICULITIS

REACTIONS (1)
  - HEPATIC FAILURE [None]
